FAERS Safety Report 6328426-X (Version None)
Quarter: 2009Q3

REPORT INFORMATION
  Report Type: 
  Country: None (occurrence: None)
  Receive Date: 20090825
  Receipt Date: 20090629
  Transmission Date: 20100115
  Serious: No
  Sender: FDA-Public Use
  Company Number: US-ABBOTT-09P-163-0582917-00

PATIENT
  Sex: Female
  Weight: 53.118 kg

DRUGS (5)
  1. SYNTHROID [Suspect]
     Indication: AUTOIMMUNE THYROIDITIS
     Dosage: 0.025MG X 3 DAILY
     Route: 048
     Dates: start: 19890101, end: 20080101
  2. SYNTHROID [Suspect]
     Dosage: 2.75TABLETSX 0.025MG DAILY
     Route: 048
     Dates: start: 20080101
  3. SYNTHROID [Suspect]
  4. TYLENOL (CAPLET) [Concomitant]
     Indication: DRUG USE FOR UNKNOWN INDICATION
     Route: 048
  5. CALCIUM SUPPLEMENT [Concomitant]
     Indication: MINERAL SUPPLEMENTATION
     Route: 048

REACTIONS (5)
  - ABNORMAL FAECES [None]
  - DEPRESSION [None]
  - DYSPNOEA [None]
  - INSOMNIA [None]
  - INTRAOCULAR PRESSURE TEST [None]
